FAERS Safety Report 23960344 (Version 1)
Quarter: 2024Q2

REPORT INFORMATION
  Report Type: Spontaneous
  Country: US (occurrence: None)
  Receive Date: 20240608
  Receipt Date: 20240608
  Transmission Date: 20240716
  Serious: Yes (Other)
  Sender: FDA-Public Use
  Company Number: None

PATIENT
  Age: 66 Year
  Sex: Female
  Weight: 70.2 kg

DRUGS (1)
  1. SEMAGLUTIDE [Suspect]
     Active Substance: SEMAGLUTIDE
     Indication: Weight decreased
     Dosage: OTHER QUANTITY : 0.25 INJECTION(S);?OTHER FREQUENCY : ONCE PER WEEK;?OTHER ROUTE : INJECTED INTO FAT
     Route: 050

REACTIONS (1)
  - Vomiting [None]

NARRATIVE: CASE EVENT DATE: 20240607
